FAERS Safety Report 9247752 (Version 2)
Quarter: 2013Q2

REPORT INFORMATION
  Report Type: Spontaneous
  Country: US (occurrence: US)
  Receive Date: 20130423
  Receipt Date: 20130515
  Transmission Date: 20140414
  Serious: Yes (Hospitalization)
  Sender: FDA-Public Use
  Company Number: US-PFIZER INC-2013123243

PATIENT
  Age: 79 Year
  Sex: Male
  Weight: 92.97 kg

DRUGS (2)
  1. XANAX [Suspect]
     Indication: DEPRESSION
     Dosage: 0.25 MG, 3X/DAY AS NEEDED
  2. COLACE [Concomitant]
     Dosage: 100 MG, 1X/DAY

REACTIONS (1)
  - Myocardial infarction [Unknown]
